FAERS Safety Report 15106429 (Version 1)
Quarter: 2018Q3

REPORT INFORMATION
  Report Type: Report from Study
  Country: US (occurrence: US)
  Receive Date: 20180704
  Receipt Date: 20180704
  Transmission Date: 20181010
  Serious: Yes (Hospitalization, Other)
  Sender: FDA-Public Use
  Company Number: US-GILEAD-2018-0345053

PATIENT
  Age: 49 Year
  Sex: Female
  Weight: 124.26 kg

DRUGS (35)
  1. REVATIO [Concomitant]
     Active Substance: SILDENAFIL CITRATE
  2. VIBRAMYCIN [Concomitant]
     Active Substance: DOXYCYCLINE
  3. VENTOLIN HFA [Concomitant]
     Active Substance: ALBUTEROL SULFATE
  4. ROCALTROL [Concomitant]
     Active Substance: CALCITRIOL
  5. CALCIUM + D3                       /00944201/ [Concomitant]
     Active Substance: CALCIUM CARBONATE\CHOLECALCIFEROL
  6. ASPIRIN 81 [Concomitant]
     Active Substance: ASPIRIN
  7. OXYGEN. [Concomitant]
     Active Substance: OXYGEN
  8. ZOCOR [Concomitant]
     Active Substance: SIMVASTATIN
  9. PRILOSEC [Concomitant]
     Active Substance: OMEPRAZOLE MAGNESIUM
  10. MACITENTAN [Concomitant]
     Active Substance: MACITENTAN
  11. MAGNESIUM OXIDE. [Concomitant]
     Active Substance: MAGNESIUM OXIDE
  12. NEURONTIN [Concomitant]
     Active Substance: GABAPENTIN
  13. FERROUS SULFATE. [Concomitant]
     Active Substance: FERROUS SULFATE
  14. POTASSIUM [Concomitant]
     Active Substance: POTASSIUM
  15. BACTRIM [Concomitant]
     Active Substance: SULFAMETHOXAZOLE\TRIMETHOPRIM
  16. POTASSIUM CHLORIDE. [Concomitant]
     Active Substance: POTASSIUM CHLORIDE
  17. PHOSLO [Concomitant]
     Active Substance: CALCIUM ACETATE
  18. LEVOTHROID [Concomitant]
     Active Substance: LEVOTHYROXINE SODIUM
  19. PROVENTIL HFA [Concomitant]
     Active Substance: ALBUTEROL SULFATE
  20. NASAL SPRAY II [Concomitant]
  21. AMBRISENTAN [Suspect]
     Active Substance: AMBRISENTAN
     Indication: PULMONARY ARTERIAL HYPERTENSION
     Dosage: 10 MG, QD
     Route: 048
     Dates: start: 20170509, end: 20180628
  22. NORCO [Concomitant]
     Active Substance: ACETAMINOPHEN\HYDROCODONE BITARTRATE
  23. PROVENTIL [Concomitant]
     Active Substance: ALBUTEROL
  24. CELEXA [Concomitant]
     Active Substance: CITALOPRAM HYDROBROMIDE
  25. VITAMIN B12 [Concomitant]
     Active Substance: CYANOCOBALAMIN
  26. UPTRAVI [Concomitant]
     Active Substance: SELEXIPAG
  27. BUMEX [Concomitant]
     Active Substance: BUMETANIDE
  28. LOVENOX [Concomitant]
     Active Substance: ENOXAPARIN SODIUM
  29. ERGOCALCIFEROL. [Concomitant]
     Active Substance: ERGOCALCIFEROL
  30. MYCOSTATIN [Concomitant]
     Active Substance: NYSTATIN
  31. VITAMIN C [Concomitant]
     Active Substance: ASCORBIC ACID
  32. KLONOPIN [Concomitant]
     Active Substance: CLONAZEPAM
  33. ANTIVERT                           /00007101/ [Concomitant]
     Active Substance: MECLIZINE MONOHYDROCHLORIDE\NIACIN
  34. KLOR?CON M20 [Concomitant]
     Active Substance: POTASSIUM CHLORIDE
  35. SYNTHROID [Concomitant]
     Active Substance: LEVOTHYROXINE SODIUM

REACTIONS (5)
  - Pulmonary arterial hypertension [Recovered/Resolved]
  - Pulmonary arterial hypertension [Recovered/Resolved]
  - Cardiac failure congestive [Recovered/Resolved]
  - Swelling [Recovered/Resolved]
  - Cardiac failure congestive [Recovered/Resolved]

NARRATIVE: CASE EVENT DATE: 20180403
